FAERS Safety Report 11340238 (Version 1)
Quarter: 2015Q3

REPORT INFORMATION
  Report Type: Spontaneous
  Country: US (occurrence: None)
  Receive Date: 20150629
  Receipt Date: 20150629
  Transmission Date: 20151125
  Serious: No
  Sender: FDA-Public Use
  Company Number: A-US2014-107026

PATIENT
  Age: 65 Year
  Sex: Female

DRUGS (1)
  1. OPSUMIT [Suspect]
     Active Substance: MACITENTAN
     Indication: PULMONARY ARTERIAL HYPERTENSION
     Route: 048

REACTIONS (8)
  - Gingival bleeding [None]
  - Epistaxis [None]
  - Haemoptysis [None]
  - Ammonia abnormal [None]
  - Oxygen saturation decreased [None]
  - Urinary tract infection [None]
  - Gingival swelling [None]
  - Pruritus [None]
